FAERS Safety Report 7416968-5 (Version None)
Quarter: 2011Q2

REPORT INFORMATION
  Report Type: 
  Country: None (occurrence: None)
  Receive Date: 20110415
  Receipt Date: 20110407
  Transmission Date: 20111010
  Serious: Yes (Hospitalization, Other)
  Sender: FDA-Public Use
  Company Number: FR-ASTELLAS-2011US000182

PATIENT

DRUGS (5)
  1. AMBISOME [Suspect]
     Dosage: 10 MG/KG, UNKNOWN/D
     Route: 042
  2. AMBISOME [Suspect]
     Dosage: UNK
     Route: 042
     Dates: start: 20110113, end: 20110205
  3. AMBISOME [Suspect]
     Dosage: 100 MG DURING 8 HOURS, TOTAL DOSE
     Route: 042
     Dates: start: 20110117
  4. AMBISOME [Suspect]
     Indication: MUCOCUTANEOUS LEISHMANIASIS
     Dosage: 600 MG, UID/QD
     Route: 042
     Dates: start: 20101221, end: 20101221
  5. AMBISOME [Suspect]
     Dosage: 10 MG, WITHIN 1 HOUR
     Route: 042
     Dates: start: 20110113

REACTIONS (6)
  - HYPOTENSION [None]
  - DYSPNOEA [None]
  - PHOSPHENES [None]
  - ERYTHEMA [None]
  - PULMONARY EMBOLISM [None]
  - BACK PAIN [None]
